FAERS Safety Report 9451065 (Version 2)
Quarter: 2013Q4

REPORT INFORMATION
  Report Type: Spontaneous
  Country: US (occurrence: US)
  Receive Date: 20130809
  Receipt Date: 20131015
  Transmission Date: 20140711
  Serious: Yes (Death, Other)
  Sender: FDA-Public Use
  Company Number: US-CELGENEUS-163-POMAL-13080899

PATIENT
  Age: 58 Year
  Sex: Male

DRUGS (3)
  1. POMALYST [Suspect]
     Indication: PLASMA CELL MYELOMA
     Dosage: 2 MILLIGRAM
     Route: 048
     Dates: start: 20130618, end: 20130701
  2. NEXIUM [Concomitant]
     Indication: PRODUCT USED FOR UNKNOWN INDICATION
     Route: 048
  3. VELCADE [Concomitant]
     Indication: PRODUCT USED FOR UNKNOWN INDICATION
     Route: 065

REACTIONS (3)
  - Plasma cell myeloma [Fatal]
  - Renal failure acute [Fatal]
  - Thrombocytopenia [Fatal]
